FAERS Safety Report 21946607 (Version 2)
Quarter: 2023Q1

REPORT INFORMATION
  Report Type: Spontaneous
  Country: US (occurrence: US)
  Receive Date: 20230202
  Receipt Date: 20230224
  Transmission Date: 20230418
  Serious: Yes (Hospitalization, Other)
  Sender: FDA-Public Use
  Company Number: US-BAXTER-2023BAX011509

PATIENT
  Sex: Female

DRUGS (1)
  1. DEXTROSE\SODIUM CHLORIDE [Suspect]
     Active Substance: DEXTROSE\SODIUM CHLORIDE
     Indication: Dehydration
     Dosage: 5 TIMES WEEKLY (1 L)
     Route: 042
     Dates: end: 202301

REACTIONS (3)
  - Bacteraemia [Recovering/Resolving]
  - Pyrexia [Unknown]
  - Muscular dystrophy [Unknown]
